FAERS Safety Report 4334885-4 (Version None)
Quarter: 2004Q2

REPORT INFORMATION
  Report Type: 
  Country: None (occurrence: None)
  Receive Date: 20040405
  Receipt Date: 20040319
  Transmission Date: 20050107
  Serious: Yes (Hospitalization, Other)
  Sender: FDA-Public Use
  Company Number: 235265

PATIENT
  Age: 1 Day
  Sex: Female
  Weight: 2.8 kg

DRUGS (6)
  1. ACTRAPID? PENFILL? HM(GE) 3ML (ACTRAPID? PENFILL? HM(GE) 3ML)(INSULIN [Suspect]
     Indication: DIABETES MELLITUS INSULIN-DEPENDENT
     Dosage: SEE IMAGE
     Route: 015
     Dates: start: 20021227
  2. ACTRAPID? PENFILL? HM(GE) 3ML (ACTRAPID? PENFILL? HM(GE) 3ML)(INSULIN [Suspect]
     Indication: DIABETES MELLITUS INSULIN-DEPENDENT
     Dosage: SEE IMAGE
     Route: 015
     Dates: start: 20040204
  3. PROTAPHANE HM PENFILL (INSULIN HUMAN) [Concomitant]
  4. PHENOBARBITAL TAB [Concomitant]
  5. ETHAMSYLATE (ETAMSILATE) [Concomitant]
  6. MENADIONE SODIUM BISULFITE (MENADIONE SODIUIM BISULFITE) [Concomitant]

REACTIONS (6)
  - FOETAL DISORDER [None]
  - FOETAL DISTRESS SYNDROME [None]
  - HYPOGLYCAEMIA NEONATAL [None]
  - HYPOXIA [None]
  - MATERNAL DRUGS AFFECTING FOETUS [None]
  - PREMATURE BABY [None]
